FAERS Safety Report 6856684-1 (Version None)
Quarter: 2010Q3

REPORT INFORMATION
  Report Type: 
  Country: None (occurrence: None)
  Receive Date: 20100716
  Receipt Date: 20100716
  Transmission Date: 20110219
  Serious: Yes (Other)
  Sender: FDA-Public Use
  Company Number: None

PATIENT
  Sex: Female

DRUGS (1)
  1. LATISSE [Suspect]
     Indication: GROWTH OF EYELASHES
     Dosage: ONE DROP EVERY NIGHT
     Dates: start: 20100520, end: 20100715

REACTIONS (4)
  - EYE IRRITATION [None]
  - EYE PAIN [None]
  - HYPERAESTHESIA [None]
  - NO THERAPEUTIC RESPONSE [None]
